FAERS Safety Report 9335202 (Version 1)
Quarter: 2013Q2

REPORT INFORMATION
  Report Type: Spontaneous
  Country: US (occurrence: US)
  Receive Date: 20130606
  Receipt Date: 20130606
  Transmission Date: 20140414
  Serious: Yes (Death, Hospitalization, Other)
  Sender: FDA-Public Use
  Company Number: 2013SP004430

PATIENT
  Age: 23 Year
  Sex: Male

DRUGS (3)
  1. VANCOMYCIN [Suspect]
     Indication: PNEUMONIA
  2. AZITHROMYCIN [Suspect]
     Indication: PNEUMONIA
  3. PIPERACILLIN + TAZOBACTAM [Suspect]
     Indication: PNEUMONIA

REACTIONS (7)
  - Drug ineffective [Unknown]
  - Haemodynamic instability [Fatal]
  - Candida pneumonia [Fatal]
  - Acute respiratory distress syndrome [Unknown]
  - Septic shock [Unknown]
  - Renal failure acute [Unknown]
  - Pyrexia [Unknown]
